FAERS Safety Report 18375147 (Version 1)
Quarter: 2020Q4

REPORT INFORMATION
  Report Type: Spontaneous
  Country: US (occurrence: US)
  Receive Date: 20201013
  Receipt Date: 20201013
  Transmission Date: 20210114
  Serious: Yes (Hospitalization, Other)
  Sender: FDA-Public Use
  Company Number: US-AMGEN-USASP2020163896

PATIENT
  Age: 66 Year
  Sex: Female
  Weight: 81.63 kg

DRUGS (11)
  1. POTASSIUM [Concomitant]
     Active Substance: POTASSIUM
  2. SULFAZINE [Concomitant]
     Active Substance: SULFASALAZINE
     Indication: RHEUMATOID ARTHRITIS
     Dosage: UNK
  3. ENBREL [Suspect]
     Active Substance: ETANERCEPT
     Indication: PRODUCT USED FOR UNKNOWN INDICATION
     Dosage: UNK
     Route: 065
     Dates: end: 2017
  4. VITAMIN D [COLECALCIFEROL] [Concomitant]
     Active Substance: CHOLECALCIFEROL
  5. HUMIRA [Suspect]
     Active Substance: ADALIMUMAB
     Indication: RHEUMATOID ARTHRITIS
     Dosage: 40 MILLIGRAM, Q2WK
     Route: 058
     Dates: start: 2017
  6. FEXOFENADINE [Concomitant]
     Active Substance: FEXOFENADINE HYDROCHLORIDE
     Indication: MULTIPLE ALLERGIES
     Dosage: UNK
  7. HYDROCHLOROTHIAZIDE. [Concomitant]
     Active Substance: HYDROCHLOROTHIAZIDE
     Indication: FLUID RETENTION
  8. VITAMIN B12 [Concomitant]
     Active Substance: CYANOCOBALAMIN
  9. COMPAZINE [PROCHLORPERAZINE EDISYLATE] [Concomitant]
     Active Substance: PROCHLORPERAZINE EDISYLATE
     Indication: RHEUMATOID ARTHRITIS
     Dosage: UNK
  10. ETODOLAC. [Concomitant]
     Active Substance: ETODOLAC
     Indication: RHEUMATOID ARTHRITIS
  11. PANTOPRAZOLE [Concomitant]
     Active Substance: PANTOPRAZOLE
     Indication: GASTROOESOPHAGEAL REFLUX DISEASE

REACTIONS (7)
  - Osteoarthritis [Recovered/Resolved]
  - Arthritis [Recovered/Resolved]
  - Drug ineffective [Unknown]
  - Lymphadenopathy [Not Recovered/Not Resolved]
  - Pneumonia [Unknown]
  - Sinusitis [Unknown]
  - Cough [Unknown]

NARRATIVE: CASE EVENT DATE: 201906
